FAERS Safety Report 4653840-8 (Version None)
Quarter: 2005Q2

REPORT INFORMATION
  Report Type: 
  Country: None (occurrence: None)
  Receive Date: 20050504
  Receipt Date: 20050419
  Transmission Date: 20051028
  Serious: Yes (Other)
  Sender: FDA-Public Use
  Company Number: 2005BI006952

PATIENT
  Age: 46 Year
  Sex: Female
  Weight: 56.246 kg

DRUGS (1)
  1. AVONEX [Suspect]
     Indication: MULTIPLE SCLEROSIS
     Dosage: 30 UG QW IM
     Route: 030
     Dates: start: 20031101, end: 20050101

REACTIONS (3)
  - AORTIC VALVE INCOMPETENCE [None]
  - BONE PAIN [None]
  - VOMITING [None]
